FAERS Safety Report 6368412-7 (Version None)
Quarter: 2009Q3

REPORT INFORMATION
  Report Type: 
  Country: None (occurrence: None)
  Receive Date: 20090831
  Receipt Date: 20090818
  Transmission Date: 20100115
  Serious: Yes (Death, Other)
  Sender: FDA-Public Use
  Company Number: THYM-1000091

PATIENT
  Age: 48 Year
  Sex: Female
  Weight: 40 kg

DRUGS (16)
  1. THYMOGLOBULIN [Suspect]
     Indication: SCLERODERMA
     Dosage: 2.5 MG/KG, INTRAVENOUS
     Route: 042
     Dates: start: 20020217, end: 20020217
  2. TYLENOL [Concomitant]
  3. BENADRYL [Concomitant]
  4. METHYLPREDNISOLONE [Concomitant]
  5. ACYCLOVIR [Concomitant]
  6. FLUCONAZOLE [Concomitant]
  7. PANTOPRAZOLE SODIUM [Concomitant]
  8. REGLAN [Concomitant]
  9. NIFEDIPINE [Concomitant]
  10. CALCIUM GLUCONATE [Concomitant]
  11. HYDRALAZINE HCL [Concomitant]
  12. ATIVAN [Concomitant]
  13. FENTANYL-100 [Concomitant]
  14. VERSED [Concomitant]
  15. CYCLOPHOSPHAMIDE [Concomitant]
  16. DIURETICS [Concomitant]

REACTIONS (15)
  - AGITATION [None]
  - ANAPHYLACTIC REACTION [None]
  - ASPIRATION [None]
  - CARDIO-RESPIRATORY ARREST [None]
  - CHILLS [None]
  - DRUG TOXICITY [None]
  - DYSPNOEA [None]
  - HYPERTENSION [None]
  - INFUSION RELATED REACTION [None]
  - PYREXIA [None]
  - RESPIRATORY DEPRESSION [None]
  - SEDATION [None]
  - TACHYCARDIA [None]
  - VENTRICULAR TACHYCARDIA [None]
  - VOMITING [None]
